FAERS Safety Report 9825140 (Version 1)
Quarter: 2013Q4

REPORT INFORMATION
  Report Type: Spontaneous
  Country: US (occurrence: None)
  Receive Date: 20131223
  Receipt Date: 20131223
  Transmission Date: 20140711
  Serious: Yes (Other)
  Sender: FDA-Public Use
  Company Number: 221020LEO

PATIENT
  Age: 62 Year
  Sex: Female

DRUGS (4)
  1. PICATO GEL [Suspect]
     Indication: ACTINIC KERATOSIS
     Dosage: 1 IN 1 D, ON FACE
     Dates: start: 20130316
  2. ATORVASTATIN (ATORVASTATIN) [Concomitant]
  3. ATENOLOL (ATENOLOL) [Concomitant]
  4. ALEVE (NAPROXEN SODIUM) [Concomitant]

REACTIONS (4)
  - Application site erythema [None]
  - Application site swelling [None]
  - Application site pain [None]
  - Nausea [None]
